FAERS Safety Report 19690381 (Version 13)
Quarter: 2023Q4

REPORT INFORMATION
  Report Type: Spontaneous
  Country: US (occurrence: US)
  Receive Date: 20210812
  Receipt Date: 20231120
  Transmission Date: 20240109
  Serious: No
  Sender: FDA-Public Use
  Company Number: US-PFIZER INC-2021692359

PATIENT
  Age: 59 Year
  Sex: Female
  Weight: 60.771 kg

DRUGS (4)
  1. IBRANCE [Suspect]
     Active Substance: PALBOCICLIB
     Indication: Breast cancer metastatic
     Dosage: 125 MG
     Dates: start: 202004
  2. IBRANCE [Suspect]
     Active Substance: PALBOCICLIB
     Dosage: 21 CONSECUTIVE DAYS AND THEN 7 DAYS OFF
     Dates: start: 202004
  3. IBRANCE [Suspect]
     Active Substance: PALBOCICLIB
     Dosage: 100 MG, CYCLIC (3 WEEKS ON, 1 WEEK OFF)
     Dates: end: 202309
  4. ANASTROZOLE [Suspect]
     Active Substance: ANASTROZOLE
     Indication: Breast cancer metastatic
     Dosage: UNK
     Dates: start: 202004, end: 202309

REACTIONS (15)
  - Neoplasm progression [Not Recovered/Not Resolved]
  - Drug intolerance [Unknown]
  - Vascular pain [Recovered/Resolved]
  - Spinal pain [Recovered/Resolved]
  - White blood cell count decreased [Recovered/Resolved]
  - Insomnia [Recovered/Resolved]
  - Night sweats [Recovered/Resolved]
  - Fatigue [Recovered/Resolved]
  - Abdominal pain upper [Not Recovered/Not Resolved]
  - Ligament laxity [Not Recovered/Not Resolved]
  - Muscle tightness [Not Recovered/Not Resolved]
  - Blood disorder [Recovered/Resolved]
  - Muscle spasms [Recovering/Resolving]
  - Exercise tolerance decreased [Recovering/Resolving]
  - Injury [Unknown]

NARRATIVE: CASE EVENT DATE: 20200401
